FAERS Safety Report 8991762 (Version 1)
Quarter: 2012Q4

REPORT INFORMATION
  Report Type: Report from Study
  Country: CA (occurrence: CA)
  Receive Date: 20121231
  Receipt Date: 20121231
  Transmission Date: 20130627
  Serious: Yes (Hospitalization, Disabling)
  Sender: FDA-Public Use
  Company Number: CA-JNJFOC-20120908806

PATIENT
  Age: 52 Year
  Sex: Female

DRUGS (10)
  1. STELARA [Suspect]
     Indication: PSORIASIS
     Route: 058
     Dates: start: 20111221
  2. ARISTOCORT TOPICAL [Concomitant]
     Route: 061
  3. MOMETASONE [Concomitant]
     Route: 061
  4. CLOBETASOL [Concomitant]
     Route: 061
  5. ASPIRIN [Concomitant]
     Route: 061
  6. POTASSIUM [Concomitant]
     Indication: BLOOD POTASSIUM DECREASED
  7. NABILONE [Concomitant]
     Indication: PAIN
  8. HYDROMORPHONE [Concomitant]
     Indication: PAIN
  9. ONDANSETRON [Concomitant]
     Indication: GASTRIC DISORDER
  10. RABEPRAZOLE [Concomitant]
     Indication: GASTRIC DISORDER

REACTIONS (5)
  - Spinal column stenosis [Unknown]
  - Intervertebral disc degeneration [Unknown]
  - Skin infection [Unknown]
  - Herpes zoster [Unknown]
  - Psoriasis [Not Recovered/Not Resolved]
